FAERS Safety Report 9940990 (Version 1)
Quarter: 2014Q1

REPORT INFORMATION
  Report Type: Spontaneous
  Country: BR (occurrence: BR)
  Receive Date: 20140303
  Receipt Date: 20140303
  Transmission Date: 20141002
  Serious: Yes (Other)
  Sender: FDA-Public Use
  Company Number: ALCN2014BR001335

PATIENT
  Age: 55 Year
  Sex: Female

DRUGS (6)
  1. TIMOLOL [Suspect]
     Indication: ANGLE CLOSURE GLAUCOMA
     Dosage: UNK UNK, ONCE/SINGLE
     Route: 047
  2. BRIMONIDINE TARTRATE [Suspect]
     Indication: ANGLE CLOSURE GLAUCOMA
     Dosage: UNK
     Route: 047
  3. DORZOLAMIDE [Suspect]
     Indication: ANGLE CLOSURE GLAUCOMA
     Dosage: UNK
     Route: 047
  4. PILOCARPINE [Suspect]
     Indication: ANGLE CLOSURE GLAUCOMA
     Dosage: UNK
     Route: 047
  5. ACETAZOLAMIDE [Suspect]
     Indication: ANGLE CLOSURE GLAUCOMA
     Dosage: UNK
     Route: 048
  6. PREDNISOLONE ACETATE [Concomitant]
     Dosage: UNK

REACTIONS (1)
  - Drug ineffective [Recovered/Resolved]
